FAERS Safety Report 18858292 (Version 1)
Quarter: 2021Q1

REPORT INFORMATION
  Report Type: Spontaneous
  Country: US (occurrence: US)
  Receive Date: 20210208
  Receipt Date: 20210208
  Transmission Date: 20210420
  Serious: No
  Sender: FDA-Public Use
  Company Number: US-SA-2021SA030557

PATIENT
  Sex: Female

DRUGS (26)
  1. DUPIXENT [Suspect]
     Active Substance: DUPILUMAB
     Indication: ILLNESS
  2. HYDROCORTISONE. [Suspect]
     Active Substance: HYDROCORTISONE
     Dosage: 20 MG
  3. DUPIXENT [Suspect]
     Active Substance: DUPILUMAB
     Indication: ASTHMA
     Dosage: 300 MG, QOW
     Route: 058
  4. DUPIXENT [Suspect]
     Active Substance: DUPILUMAB
     Indication: MIGRAINE WITHOUT AURA
  5. DUPIXENT [Suspect]
     Active Substance: DUPILUMAB
     Indication: OESOPHAGITIS
  6. KIOVIG [Suspect]
     Active Substance: HUMAN IMMUNOGLOBULIN G
     Dosage: UNK
  7. PROMETHAZINE [Suspect]
     Active Substance: PROMETHAZINE HYDROCHLORIDE
     Dosage: 25025 MG
  8. RHOFADE [Suspect]
     Active Substance: OXYMETAZOLINE HYDROCHLORIDE
     Dosage: 20 MG
  9. AMMONIUM LACTATE. [Concomitant]
     Active Substance: AMMONIUM LACTATE
     Dosage: 12 % LOTION
  10. BENADRYL DM [Suspect]
     Active Substance: DEXTROMETHORPHAN HYDROBROMIDE\DIPHENHYDRAMINE HYDROCHLORIDE
     Dosage: 25 MG
  11. IBUPROFEN. [Suspect]
     Active Substance: IBUPROFEN
     Dosage: 200 MG
  12. ZOFRAN ODT [Concomitant]
     Active Substance: ONDANSETRON HYDROCHLORIDE
     Dosage: 10 MG
  13. ZYRTEC [Concomitant]
     Active Substance: CETIRIZINE HYDROCHLORIDE
     Dosage: 10 MG
  14. AMETHIA [Concomitant]
     Active Substance: ETHINYL ESTRADIOL\LEVONORGESTREL
     Dosage: UNK
  15. DUPIXENT [Suspect]
     Active Substance: DUPILUMAB
     Indication: GASTROOESOPHAGEAL REFLUX DISEASE
  16. RIZATRIPTAN. [Suspect]
     Active Substance: RIZATRIPTAN
     Dosage: 10 MG
  17. SINGULAIR [Suspect]
     Active Substance: MONTELUKAST SODIUM
     Dosage: 10 MG
  18. DUPIXENT [Suspect]
     Active Substance: DUPILUMAB
     Indication: RHINITIS ALLERGIC
  19. OMEPRAZOLE. [Suspect]
     Active Substance: OMEPRAZOLE
     Dosage: 40 MG
  20. ALBUTEROL SULFATE. [Concomitant]
     Active Substance: ALBUTEROL SULFATE
  21. DUPIXENT [Suspect]
     Active Substance: DUPILUMAB
     Indication: EOSINOPHILIA
  22. LOMOTIL [LOPERAMIDE HYDROCHLORIDE] [Concomitant]
     Active Substance: LOPERAMIDE HYDROCHLORIDE
     Dosage: UNK; 2.5?.025MG
  23. MULTIVITAMIN [ASCORBIC ACID;BIOTIN;CALCIUM PANTOTHENATE;CYANOCOBALAMIN [Concomitant]
     Active Substance: VITAMINS
  24. AIMOVIG [Concomitant]
     Active Substance: ERENUMAB-AOOE
     Dosage: 70 MG/ML
  25. DICYCLOMINE?S [Suspect]
     Active Substance: DICYCLOMINE HYDROCHLORIDE
     Dosage: 20 MG
  26. BREO ELLIPTA [Concomitant]
     Active Substance: FLUTICASONE FUROATE\VILANTEROL TRIFENATATE
     Dosage: UNK

REACTIONS (1)
  - Product use in unapproved indication [Unknown]
